FAERS Safety Report 5072962-3 (Version None)
Quarter: 2006Q3

REPORT INFORMATION
  Report Type: 
  Country: None (occurrence: None)
  Receive Date: 20060802
  Receipt Date: 20060721
  Transmission Date: 20061208
  Serious: Yes (Hospitalization)
  Sender: FDA-Public Use
  Company Number: 2006087830

PATIENT
  Age: 67 Year
  Sex: Male

DRUGS (5)
  1. CARDURA [Suspect]
     Indication: HYPERTENSION
     Dosage: 4 MG (2 MG, 1 IN 2 D) ORAL
     Route: 048
  2. ZESTRIL [Suspect]
     Indication: HYPERTENSION
     Dosage: 10 MG (5 MG, 2 IN 1 D) ORAL
     Route: 048
  3. PERSANTIN [Suspect]
     Indication: HYPERTENSION
     Dosage: 225 MG (75 MG, 3 IN 1 D) ORAL
     Route: 048
  4. ALLOPURINOL [Suspect]
     Indication: GOUT
     Dosage: 300 MG (300 MG, 1 IN 1 D) ORAL
     Route: 048
  5. FESTATIN (UBENIMEX) [Concomitant]

REACTIONS (3)
  - BENIGN PROSTATIC HYPERPLASIA [None]
  - DRUG INEFFECTIVE [None]
  - ERECTILE DYSFUNCTION [None]
